FAERS Safety Report 4654060-3 (Version None)
Quarter: 2005Q2

REPORT INFORMATION
  Report Type: 
  Country: None (occurrence: None)
  Receive Date: 20050504
  Receipt Date: 20050419
  Transmission Date: 20051028
  Serious: Yes (Hospitalization)
  Sender: FDA-Public Use
  Company Number: 2005000748

PATIENT
  Age: 59 Year
  Sex: Male

DRUGS (4)
  1. ERLOTINIB HCL [Suspect]
     Indication: NON-SMALL CELL LUNG CANCER
     Dosage: 150 MG (QD), ORAL
     Route: 048
     Dates: start: 20050111, end: 20050407
  2. ENALAPRIL MALEATE [Concomitant]
  3. METOPROLOL TARTRATE [Concomitant]
  4. NITRENDIPINE (NITRENDIPINE) [Concomitant]

REACTIONS (1)
  - PNEUMOTHORAX [None]
